FAERS Safety Report 5400762-0 (Version None)
Quarter: 2007Q3

REPORT INFORMATION
  Report Type: 
  Country: None (occurrence: None)
  Receive Date: 20070730
  Receipt Date: 20070718
  Transmission Date: 20080115
  Serious: Yes (Other)
  Sender: FDA-Public Use
  Company Number: US-PFIZER INC-2007060468

PATIENT
  Age: 45 Year
  Sex: Female

DRUGS (2)
  1. LYRICA [Suspect]
     Indication: TRIGEMINAL NEURALGIA
  2. INDERAL [Concomitant]

REACTIONS (14)
  - ABDOMINAL DISTENSION [None]
  - ANXIETY [None]
  - COORDINATION ABNORMAL [None]
  - DYSPEPSIA [None]
  - DYSPNOEA [None]
  - EUPHORIC MOOD [None]
  - FATIGUE [None]
  - FEELING ABNORMAL [None]
  - HEART RATE INCREASED [None]
  - INCREASED APPETITE [None]
  - MYALGIA [None]
  - PAIN [None]
  - PALPITATIONS [None]
  - SLEEP DISORDER [None]
